FAERS Safety Report 6719890-2 (Version None)
Quarter: 2010Q2

REPORT INFORMATION
  Report Type: 
  Country: None (occurrence: None)
  Receive Date: 20100511
  Receipt Date: 20100430
  Transmission Date: 20101027
  Serious: Yes (Hospitalization)
  Sender: FDA-Public Use
  Company Number: CA-JNJFOC-20100501461

PATIENT
  Sex: Female
  Weight: 64 kg

DRUGS (8)
  1. REMICADE [Suspect]
     Indication: CROHN'S DISEASE
     Route: 042
  2. MATERNA [Concomitant]
  3. IMURAN [Concomitant]
  4. PALAFER [Concomitant]
  5. BETAMETHASONE [Concomitant]
  6. TYLENOL-500 [Concomitant]
     Route: 048
  7. SOLU-CORTEF [Concomitant]
     Route: 042
  8. GRAVOL TAB [Concomitant]
     Route: 042

REACTIONS (5)
  - ABDOMINAL PAIN [None]
  - DRUG EXPOSURE DURING PREGNANCY [None]
  - NASOPHARYNGITIS [None]
  - UTERINE CONTRACTIONS DURING PREGNANCY [None]
  - VAGINAL HAEMORRHAGE [None]
